FAERS Safety Report 10038511 (Version 1)
Quarter: 2014Q1

REPORT INFORMATION
  Report Type: Spontaneous
  Country: US (occurrence: None)
  Receive Date: 20140306
  Receipt Date: 20140306
  Transmission Date: 20141002
  Serious: Yes (Hospitalization, Other)
  Sender: FDA-Public Use
  Company Number: 163-21880-13111708

PATIENT
  Age: 71 Year
  Sex: Male

DRUGS (11)
  1. REVLIMID(LENALIDOMIDE)(CAPSULES) [Suspect]
     Indication: PLASMA CELL MYELOMA
     Route: 048
     Dates: start: 201301, end: 201305
  2. ASA(ACETYLSALICYLIC ACID) [Concomitant]
  3. ALBUTEROL(SALBUTAMOL) [Concomitant]
  4. VITAMIN B (VITAMIN B) [Concomitant]
  5. OMEPRAZOLE(OMEPRAZOLE) [Concomitant]
  6. NEURONTIN(GABAPETIN) [Concomitant]
  7. IRON(IRON) [Concomitant]
  8. GARLIC(GARLIC) [Concomitant]
  9. VITAMIN E (TOCOPHEROL) [Concomitant]
  10. ITRIZOLE(ITRACONAZOLE) [Concomitant]
  11. VITAMIN C (ASCORBIC ACID) [Concomitant]

REACTIONS (4)
  - Pulmonary embolism [None]
  - Deep vein thrombosis [None]
  - Small intestinal obstruction [None]
  - Pneumonia [None]
